FAERS Safety Report 23743656 (Version 1)
Quarter: 2024Q2

REPORT INFORMATION
  Report Type: Spontaneous
  Country: KR (occurrence: KR)
  Receive Date: 20240415
  Receipt Date: 20240415
  Transmission Date: 20240716
  Serious: Yes (Death)
  Sender: FDA-Public Use
  Company Number: KR-002147023-NVSC2022KR255149

PATIENT
  Sex: Male

DRUGS (4)
  1. BEOVU [Suspect]
     Active Substance: BROLUCIZUMAB-DBLL
     Indication: Neovascular age-related macular degeneration
     Dosage: 6 MG, Q4W (EVERY 4 WEEKS)
     Route: 031
     Dates: start: 20220826
  2. BEOVU [Suspect]
     Active Substance: BROLUCIZUMAB-DBLL
     Dosage: 6 MG, Q4W (EVERY 4 WEEKS) (LAST DOSE PRIOR TO THE EVENT)
     Route: 031
     Dates: start: 20220926
  3. EYLEA [Concomitant]
     Active Substance: AFLIBERCEPT
     Indication: Neovascular age-related macular degeneration
     Dosage: 2 MG
     Route: 065
     Dates: start: 20220826
  4. EYLEA [Concomitant]
     Active Substance: AFLIBERCEPT
     Dosage: 2 MG
     Route: 065
     Dates: start: 20220926

REACTIONS (1)
  - Death [Fatal]
